FAERS Safety Report 24461356 (Version 1)
Quarter: 2024Q4

REPORT INFORMATION
  Report Type: Report from Study
  Country: IN (occurrence: IN)
  Receive Date: 20241018
  Receipt Date: 20241018
  Transmission Date: 20250115
  Serious: No
  Sender: ROCHE
  Company Number: IN-ROCHE-3550363

PATIENT

DRUGS (1)
  1. RITUXIMAB [Interacting]
     Active Substance: RITUXIMAB
     Indication: Immunosuppression
     Route: 065

REACTIONS (3)
  - Vaccine interaction [Unknown]
  - Vaccination failure [Unknown]
  - COVID-19 [Unknown]
